FAERS Safety Report 5024131-0 (Version None)
Quarter: 2006Q2

REPORT INFORMATION
  Report Type: 
  Country: None (occurrence: None)
  Receive Date: 20060607
  Receipt Date: 20060428
  Transmission Date: 20061013
  Serious: Yes (Hospitalization)
  Sender: FDA-Public Use
  Company Number: 2006059418

PATIENT
  Sex: Female

DRUGS (2)
  1. BEXTRA [Suspect]
     Indication: ILL-DEFINED DISORDER
     Dosage: ORAL
     Route: 048
     Dates: start: 20000101
  2. VIOXX [Suspect]
     Indication: ILL-DEFINED DISORDER
     Dosage: ORAL
     Route: 048
     Dates: start: 20000501

REACTIONS (1)
  - TRANSIENT ISCHAEMIC ATTACK [None]
